FAERS Safety Report 25384645 (Version 1)
Quarter: 2025Q2

REPORT INFORMATION
  Report Type: Spontaneous
  Country: NO (occurrence: NO)
  Receive Date: 20250602
  Receipt Date: 20250602
  Transmission Date: 20250717
  Serious: Yes (Life-Threatening)
  Sender: MERCK SHARP & DOHME LLC
  Company Number: None

PATIENT
  Age: 77 Year
  Sex: Male

DRUGS (4)
  1. SUGAMMADEX [Suspect]
     Active Substance: SUGAMMADEX
     Indication: Anaesthesia procedure
     Dates: start: 20250422, end: 20250422
  2. PHENYLEPHRINE [Concomitant]
     Active Substance: PHENYLEPHRINE
     Indication: Hypotension
     Dates: start: 20250422, end: 20250422
  3. KETOROLAC [Suspect]
     Active Substance: KETOROLAC TROMETHAMINE
     Indication: Anaesthesia procedure
     Dates: start: 20250422, end: 20250422
  4. BUPIVACAINE [Suspect]
     Active Substance: BUPIVACAINE
     Indication: Anaesthesia procedure
     Dates: start: 20250422, end: 20250422

REACTIONS (1)
  - Anaphylactic reaction [Recovered/Resolved]

NARRATIVE: CASE EVENT DATE: 20250422
